FAERS Safety Report 14129406 (Version 1)
Quarter: 2017Q4

REPORT INFORMATION
  Report Type: Report from Study
  Country: US (occurrence: US)
  Receive Date: 20171026
  Receipt Date: 20171026
  Transmission Date: 20180321
  Serious: Yes (Hospitalization)
  Sender: FDA-Public Use
  Company Number: US-GILEAD-2017-0300575

PATIENT
  Age: 9 Year
  Sex: Male

DRUGS (9)
  1. MEPHYTON [Concomitant]
     Active Substance: PHYTONADIONE
  2. SODIUM CHLORIDE. [Concomitant]
     Active Substance: SODIUM CHLORIDE
  3. ZENPEP [Concomitant]
     Active Substance: PANCRELIPASE AMYLASE\PANCRELIPASE LIPASE\PANCRELIPASE PROTEASE
  4. PULMOZYME [Concomitant]
     Active Substance: DORNASE ALFA
  5. COLISTIMETHATE [Concomitant]
     Active Substance: COLISTIMETHATE SODIUM
  6. AZTREONAM LYSINE [Suspect]
     Active Substance: AZTREONAM LYSINE
     Indication: CYSTIC FIBROSIS
     Dosage: 75 MG, TID
     Route: 055
     Dates: start: 20150415
  7. PREVACID [Concomitant]
     Active Substance: LANSOPRAZOLE
  8. RANITIDINE. [Concomitant]
     Active Substance: RANITIDINE
  9. RELIZORB [Concomitant]

REACTIONS (2)
  - Intentional product use issue [Unknown]
  - Cystic fibrosis respiratory infection suppression [Not Recovered/Not Resolved]

NARRATIVE: CASE EVENT DATE: 201710
